FAERS Safety Report 8435709-6 (Version None)
Quarter: 2012Q2

REPORT INFORMATION
  Report Type: 
  Country: None (occurrence: None)
  Receive Date: 20120614
  Receipt Date: 20120608
  Transmission Date: 20120825
  Serious: Yes (Other)
  Sender: FDA-Public Use
  Company Number: DE-JNJFOC-20110603816

PATIENT
  Age: 51 Year
  Sex: Male

DRUGS (3)
  1. SIMPONI [Suspect]
     Route: 058
     Dates: start: 20110208
  2. TNF BLOCKER [Concomitant]
  3. SIMPONI [Suspect]
     Indication: ANKYLOSING SPONDYLITIS
     Route: 058
     Dates: end: 20110404

REACTIONS (1)
  - HEPATIC CIRRHOSIS [None]
